FAERS Safety Report 6745500-4 (Version None)
Quarter: 2010Q2

REPORT INFORMATION
  Report Type: 
  Country: None (occurrence: None)
  Receive Date: 20100528
  Receipt Date: 20100517
  Transmission Date: 20101027
  Serious: No
  Sender: FDA-Public Use
  Company Number: US-JNJFOC-20100506983

PATIENT
  Sex: Female
  Weight: 58.51 kg

DRUGS (5)
  1. FENTANYL CITRATE [Suspect]
     Indication: PAIN
     Dosage: 100UG/HR/PATCH/50UG/HR/2 EVERY 72 HOURS/TD, NDC# 0781-7242-55
     Route: 062
  2. FENTANYL CITRATE [Suspect]
     Route: 062
  3. OXYCODONE [Concomitant]
     Indication: COMPLEX REGIONAL PAIN SYNDROME
     Dosage: 10/325MG/TABLET/10/325MG/1 3TIMES PER DAY/ORAL
     Route: 048
  4. COMPAZINE [Concomitant]
     Indication: NAUSEA
     Route: 048
  5. LYRICA [Concomitant]
     Indication: COMPLEX REGIONAL PAIN SYNDROME
     Route: 048

REACTIONS (3)
  - GASTROOESOPHAGEAL REFLUX DISEASE [None]
  - INSOMNIA [None]
  - WRONG TECHNIQUE IN DRUG USAGE PROCESS [None]
